FAERS Safety Report 18017094 (Version 3)
Quarter: 2021Q4

REPORT INFORMATION
  Report Type: Spontaneous
  Country: US (occurrence: US)
  Receive Date: 20200714
  Receipt Date: 20211115
  Transmission Date: 20220303
  Serious: Yes (Other)
  Sender: FDA-Public Use
  Company Number: US-PFIZER INC-2020249102

PATIENT
  Age: 5 Year
  Sex: Female
  Weight: 120.2 kg

DRUGS (4)
  1. DILANTIN [Suspect]
     Active Substance: PHENYTOIN
     Indication: Epilepsy
     Dosage: 400 MG, ALTERNATE DAY (2 CAPSULES IN MORNING, 2 CAPSULES IN EVEN NIGHTS)
     Route: 048
     Dates: start: 1971
  2. DILANTIN [Suspect]
     Active Substance: PHENYTOIN
     Indication: Seizure
     Dosage: 500 MG, ALTERNATE DAY (2 CAPSULES IN MORNING, 3 CAPSULES IN ODD NIGHT)
     Route: 048
     Dates: start: 1971
  3. DILANTIN [Suspect]
     Active Substance: PHENYTOIN
     Dosage: 400 MG, ALTERNATE DAY (200 MG IN MORNING AND 200 MG AT NIGHT ON ODD DAYS)
  4. DILANTIN [Suspect]
     Active Substance: PHENYTOIN
     Dosage: 500 MG, ALTERNATE DAY (THEN TAKES 200 MG IN MORNING AND 300 MG AT NIGHT ON EVEN DAYS)

REACTIONS (2)
  - Hemiplegia [Unknown]
  - Off label use [Unknown]

NARRATIVE: CASE EVENT DATE: 19710101
